FAERS Safety Report 20609188 (Version 1)
Quarter: 2022Q1

REPORT INFORMATION
  Report Type: Spontaneous
  Country: KR (occurrence: KR)
  Receive Date: 20220317
  Receipt Date: 20220317
  Transmission Date: 20220424
  Serious: Yes (Hospitalization, Other)
  Sender: FDA-Public Use
  Company Number: KR-009507513-2108KOR007588

PATIENT
  Age: 67 Year
  Sex: Female
  Weight: 63 kg

DRUGS (9)
  1. KEYTRUDA [Suspect]
     Active Substance: PEMBROLIZUMAB
  2. CNOXANE [Concomitant]
     Indication: Deep vein thrombosis
     Dosage: 1 DOSAGE FORM (REPORTED AS ^SYR^), BID; STRENGHT: 80 MG/0.8ML
     Route: 058
     Dates: start: 20201005, end: 20210117
  3. CRESTOR [Concomitant]
     Active Substance: ROSUVASTATIN CALCIUM
     Indication: Hyperlipidaemia
     Dosage: 1 TABLET, QD
     Route: 048
     Dates: start: 20200928
  4. FEROBA YOU [Concomitant]
     Indication: Anaemia
     Dosage: 1 TABLET, BID
     Route: 048
     Dates: start: 20200928
  5. FEROBA YOU [Concomitant]
     Dosage: 1 TABLET, BID
     Route: 048
     Dates: start: 20200928
  6. METGREEN [Concomitant]
     Indication: Diabetes mellitus
     Dosage: 1 TABLET, QD
     Route: 048
     Dates: start: 20200928, end: 20210202
  7. URSODIOL [Concomitant]
     Active Substance: URSODIOL
     Indication: Liver function test increased
     Dosage: 1 TABLET, TID
     Route: 048
     Dates: start: 20201214
  8. URSODIOL [Concomitant]
     Active Substance: URSODIOL
     Dosage: 1 TABLET, TID
     Route: 048
     Dates: start: 20201214
  9. QUDEXY XR [Concomitant]
     Active Substance: TOPIRAMATE
     Indication: Epilepsy
     Dosage: 1 CAPSULE, QD
     Route: 048
     Dates: start: 20201104, end: 20210124

REACTIONS (4)
  - Seizure [Recovered/Resolved]
  - Electroencephalogram abnormal [Recovered/Resolved]
  - Chest discomfort [Unknown]
  - Product use issue [Unknown]

NARRATIVE: CASE EVENT DATE: 20210116
